FAERS Safety Report 6428601-X (Version None)
Quarter: 2009Q4

REPORT INFORMATION
  Report Type: 
  Country: None (occurrence: None)
  Receive Date: 20091105
  Receipt Date: 20091028
  Transmission Date: 20100525
  Serious: Yes (Death)
  Sender: FDA-Public Use
  Company Number: CH-PFIZER INC-2009276898

PATIENT

DRUGS (1)
  1. FARLUTAL [Suspect]

REACTIONS (2)
  - DISEASE PROGRESSION [None]
  - HEPATIC NEOPLASM MALIGNANT [None]
